FAERS Safety Report 6012472-X (Version None)
Quarter: 2008Q4

REPORT INFORMATION
  Report Type: 
  Country: None (occurrence: None)
  Receive Date: 20081216
  Receipt Date: 20080604
  Transmission Date: 20090506
  Serious: Yes (Other)
  Sender: FDA-Public Use
  Company Number: US-WYE-H04372108

PATIENT
  Age: 1 Month

DRUGS (1)
  1. EFFEXOR XR [Suspect]
     Dosage: TRANSMAMMARY, ^4-5 DAYS^
     Route: 063

REACTIONS (5)
  - DRUG EXPOSURE VIA BREAST MILK [None]
  - FEEDING DISORDER OF INFANCY OR EARLY CHILDHOOD [None]
  - HEART RATE INCREASED [None]
  - IRRITABILITY [None]
  - RESPIRATORY RATE INCREASED [None]
